FAERS Safety Report 20477720 (Version 1)
Quarter: 2022Q1

REPORT INFORMATION
  Report Type: Report from Study
  Country: TR (occurrence: TR)
  Receive Date: 20220216
  Receipt Date: 20220216
  Transmission Date: 20220423
  Serious: Yes (Hospitalization, Other)
  Sender: FDA-Public Use
  Company Number: TR-BoehringerIngelheim-2022-BI-153145

PATIENT
  Age: 32 Year
  Sex: Female

DRUGS (3)
  1. PRAMIPEXOLE [Suspect]
     Active Substance: PRAMIPEXOLE
     Indication: Restless legs syndrome
  2. PRAMIPEXOLE [Suspect]
     Active Substance: PRAMIPEXOLE
  3. AMITRIPTYLINE [Concomitant]
     Active Substance: AMITRIPTYLINE
     Indication: Fibromyalgia

REACTIONS (4)
  - Major depression [Unknown]
  - Compulsive shopping [Unknown]
  - Intentional product use issue [Unknown]
  - Malnutrition [Unknown]
